FAERS Safety Report 20183148 (Version 1)
Quarter: 2021Q4

REPORT INFORMATION
  Report Type: Spontaneous
  Country: US (occurrence: None)
  Receive Date: 20211213
  Receipt Date: 20211213
  Transmission Date: 20220304
  Serious: No
  Sender: FDA-Public Use
  Company Number: None

PATIENT
  Sex: Female

DRUGS (2)
  1. BORIC ACID [Suspect]
     Active Substance: BORIC ACID
  2. BoriCap [Concomitant]

REACTIONS (3)
  - Incorrect route of product administration [None]
  - Product packaging confusion [None]
  - Product label confusion [None]
